FAERS Safety Report 8328654-8 (Version None)
Quarter: 2012Q2

REPORT INFORMATION
  Report Type: 
  Country: None (occurrence: None)
  Receive Date: 20120430
  Receipt Date: 20120423
  Transmission Date: 20120825
  Serious: Yes (Hospitalization)
  Sender: FDA-Public Use
  Company Number: 2012CP000033

PATIENT
  Age: 42 Year
  Sex: Male
  Weight: 104.3273 kg

DRUGS (2)
  1. HYDROMORPHONE HCL [Concomitant]
  2. OFIRMEV [Suspect]
     Indication: PROCEDURAL PAIN
     Dosage: 1 GM; ONCE; IV
     Route: 042
     Dates: start: 20120329, end: 20120329

REACTIONS (2)
  - MALAISE [None]
  - HYPERHIDROSIS [None]
